FAERS Safety Report 6762207-8 (Version None)
Quarter: 2010Q2

REPORT INFORMATION
  Report Type: 
  Country: None (occurrence: None)
  Receive Date: 20100609
  Receipt Date: 20100602
  Transmission Date: 20101027
  Serious: Yes (Hospitalization)
  Sender: FDA-Public Use
  Company Number: US-RB-009895-10

PATIENT
  Age: 59 Year
  Sex: Male

DRUGS (3)
  1. SUBOXONE [Suspect]
     Indication: DRUG DEPENDENCE
     Dosage: DOSE VARIES FROM 20-24 MG DAILY
     Route: 060
     Dates: start: 20070101
  2. SUBOXONE [Suspect]
     Indication: PAIN
     Dosage: DOSE VARIES FROM 20-24 MG DAILY
     Route: 060
     Dates: start: 20070101
  3. CYMBALTA [Concomitant]
     Indication: DEPRESSION
     Dosage: DOSING DETAILS UNKNOWN
     Route: 065

REACTIONS (8)
  - ANXIETY [None]
  - ARTHROPATHY [None]
  - CONDITION AGGRAVATED [None]
  - DEPRESSION [None]
  - INTERVERTEBRAL DISC DEGENERATION [None]
  - INTERVERTEBRAL DISC PROTRUSION [None]
  - PAIN [None]
  - PROSTATE CANCER [None]
